FAERS Safety Report 4282520-6 (Version None)
Quarter: 2004Q1

REPORT INFORMATION
  Report Type: 
  Country: None (occurrence: None)
  Receive Date: 20040129
  Receipt Date: 20040113
  Transmission Date: 20041129
  Serious: Yes (Hospitalization)
  Sender: FDA-Public Use
  Company Number: 701280

PATIENT
  Age: 85 Year
  Sex: Male

DRUGS (3)
  1. AMEVIVE [Suspect]
     Indication: PSORIASIS
     Dosage: 15 MG QW IM
     Route: 030
     Dates: start: 20030730, end: 20031022
  2. ANTIBIOTICS (NOS) [Concomitant]
  3. SYNVISC [Concomitant]

REACTIONS (2)
  - DRUG EFFECT DECREASED [None]
  - PHARYNGITIS STREPTOCOCCAL [None]
